FAERS Safety Report 11742079 (Version 3)
Quarter: 2016Q2

REPORT INFORMATION
  Report Type: Spontaneous
  Country: US (occurrence: US)
  Receive Date: 20151116
  Receipt Date: 20160629
  Transmission Date: 20160815
  Serious: Yes (Other)
  Sender: FDA-Public Use
  Company Number: US-PFIZER INC-2015388599

PATIENT
  Age: 47 Year
  Sex: Female
  Weight: 72 kg

DRUGS (11)
  1. XELJANZ [Suspect]
     Active Substance: TOFACITINIB CITRATE
     Indication: OSTEOARTHRITIS
  2. XELJANZ [Suspect]
     Active Substance: TOFACITINIB CITRATE
     Indication: ARTHRITIS
     Dosage: 5 MG, 2X/DAY
     Dates: start: 2014
  3. CLINORIL [Concomitant]
     Active Substance: SULINDAC
     Indication: ARTHRITIS
     Dosage: 200 MG, 2X/DAY
  4. METHOTREXATE [Concomitant]
     Active Substance: METHOTREXATE
     Indication: IMMUNOSUPPRESSANT DRUG THERAPY
     Dosage: 20 MG, WEEKLY (10MG IN THE MORNING AND 10MG IN THE EVENING)
     Dates: start: 2014
  5. CENTRUM [Concomitant]
     Active Substance: VITAMINS
     Indication: VEGETARIAN
  6. FLU SHOT [Suspect]
     Active Substance: INFLUENZA VIRUS VACCINE
     Indication: IMMUNISATION
     Dosage: UNK
  7. CENTRUM [Concomitant]
     Active Substance: VITAMINS
     Indication: RHEUMATOID ARTHRITIS
     Dosage: 1 DF, DAILY (ONE VITAMIN DAILY)
  8. TRAMADOL. [Concomitant]
     Active Substance: TRAMADOL
     Indication: PAIN
     Dosage: 50 MG, AS NEEDED FOR PAIN (
     Dates: start: 2014
  9. ONE A DAY [Concomitant]
     Indication: VEGETARIAN
  10. ONE A DAY [Concomitant]
     Indication: RHEUMATOID ARTHRITIS
     Dosage: UNK UNK, 1X/DAY
  11. FOLIC ACID. [Concomitant]
     Active Substance: FOLIC ACID
     Dosage: 1 MG, DAILY
     Dates: start: 2014

REACTIONS (7)
  - Weight increased [Unknown]
  - Condition aggravated [Unknown]
  - Joint injury [Unknown]
  - Grip strength decreased [Unknown]
  - Arthropathy [Unknown]
  - Viral infection [Unknown]
  - Impaired work ability [Unknown]
